FAERS Safety Report 10185240 (Version 1)
Quarter: 2014Q2

REPORT INFORMATION
  Report Type: Spontaneous
  Country: CA (occurrence: CA)
  Receive Date: 20140521
  Receipt Date: 20140521
  Transmission Date: 20141212
  Serious: Yes (Other)
  Sender: FDA-Public Use
  Company Number: CA-MYLANLABS-2014S1011067

PATIENT
  Sex: Female

DRUGS (1)
  1. EPINEPHRINE [Suspect]

REACTIONS (1)
  - Electrocardiogram QT prolonged [Unknown]
